FAERS Safety Report 14474897 (Version 1)
Quarter: 2018Q1

REPORT INFORMATION
  Report Type: Spontaneous
  Country: US (occurrence: US)
  Receive Date: 20180131
  Receipt Date: 20180131
  Transmission Date: 20180509
  Serious: No
  Sender: FDA-Public Use
  Company Number: None

PATIENT
  Age: 57 Year
  Sex: Female
  Weight: 83.25 kg

DRUGS (19)
  1. CIPROFLOXACIN HCL ORAL TABLET 500 MG [Suspect]
     Active Substance: CIPROFLOXACIN HYDROCHLORIDE
     Indication: URINARY TRACT INFECTION
     Route: 048
     Dates: start: 20180108, end: 20180115
  2. AMITRIPTYLINE [Concomitant]
     Active Substance: AMITRIPTYLINE
  3. WELLBUTRIN [Concomitant]
     Active Substance: BUPROPION HYDROCHLORIDE
  4. VITAMIN A [Concomitant]
     Active Substance: VITAMIN A
  5. TUMERIC [Concomitant]
     Active Substance: HERBALS\TURMERIC
  6. VITAMIN D [Concomitant]
     Active Substance: CHOLECALCIFEROL
  7. 5-HTP [Concomitant]
     Active Substance: OXITRIPTAN
  8. VALSARTIN [Concomitant]
  9. KRILL OIL [Concomitant]
     Active Substance: DIETARY SUPPLEMENT
  10. ZYRTEC GENERIC [Concomitant]
  11. MAGNESIUM [Concomitant]
     Active Substance: MAGNESIUM
  12. HYDROCHLOTHIAZIDE [Concomitant]
     Active Substance: HYDROCHLOROTHIAZIDE
  13. SUPER B [Concomitant]
  14. TOPAMAX [Concomitant]
     Active Substance: TOPIRAMATE
  15. VITAMIN E [Concomitant]
     Active Substance: .ALPHA.-TOCOPHEROL
  16. PROBIOTICS [Concomitant]
     Active Substance: PROBIOTICS NOS
  17. CQ10 [Concomitant]
     Active Substance: UBIDECARENONE
  18. QUERCETIN [Concomitant]
     Active Substance: QUERCETIN
  19. VITAMIN K [Concomitant]
     Active Substance: PHYTONADIONE

REACTIONS (2)
  - Meniscus injury [None]
  - Arthritis [None]

NARRATIVE: CASE EVENT DATE: 20180115
